FAERS Safety Report 14820399 (Version 2)
Quarter: 2018Q2

REPORT INFORMATION
  Report Type: Report from Study
  Country: LB (occurrence: LB)
  Receive Date: 20180427
  Receipt Date: 20180501
  Transmission Date: 20180711
  Serious: Yes (Death)
  Sender: FDA-Public Use
  Company Number: PHHY2018LB074212

PATIENT
  Age: 86 Year
  Sex: Female

DRUGS (1)
  1. TYKERB [Suspect]
     Active Substance: LAPATINIB DITOSYLATE
     Indication: BREAST CANCER METASTATIC
     Dosage: 5 DF, QD
     Route: 048
     Dates: start: 201803

REACTIONS (3)
  - Malignant neoplasm progression [Fatal]
  - Breast cancer metastatic [Fatal]
  - Fatigue [Unknown]
